FAERS Safety Report 5835071-9 (Version None)
Quarter: 2008Q3

REPORT INFORMATION
  Report Type: 
  Country: None (occurrence: None)
  Receive Date: 20080805
  Receipt Date: 20080805
  Transmission Date: 20090109
  Serious: No
  Sender: FDA-Public Use
  Company Number: None

PATIENT
  Age: 29 Year
  Sex: Female
  Weight: 98.3 kg

DRUGS (6)
  1. EDROPHONIUM CHLORIDE [Suspect]
     Indication: TENSILON TEST
     Dosage: 2 MG ONE TIME TEST DOSE IV BOLUS 8 MG ONE TIME DOSE IV BOLUS
     Route: 040
     Dates: start: 20080616, end: 20080616
  2. EVOXAC [Concomitant]
  3. PROZAC [Concomitant]
  4. BIRTH CONTROL PILL [Concomitant]
  5. VYTORIN [Concomitant]
  6. PHENTERMINE [Concomitant]

REACTIONS (2)
  - BLOOD PRESSURE SYSTOLIC INCREASED [None]
  - CHEST DISCOMFORT [None]
